FAERS Safety Report 11736122 (Version 1)
Quarter: 2015Q4

REPORT INFORMATION
  Report Type: Spontaneous
  Country: US (occurrence: US)
  Receive Date: 20151113
  Receipt Date: 20151113
  Transmission Date: 20160304
  Serious: No
  Sender: FDA-Public Use
  Company Number: US-JNJFOC-20151003163

PATIENT
  Sex: Female
  Weight: 52.16 kg

DRUGS (1)
  1. TOPAMAX [Suspect]
     Active Substance: TOPIRAMATE
     Indication: HEADACHE
     Route: 048

REACTIONS (9)
  - Dyskinesia [Unknown]
  - Confusional state [Unknown]
  - Limb discomfort [Unknown]
  - Increased appetite [Unknown]
  - Hypoaesthesia [Unknown]
  - Feeling abnormal [Unknown]
  - Paraesthesia [Unknown]
  - Abnormal loss of weight [Unknown]
  - Ligament sprain [Unknown]
